FAERS Safety Report 25396616 (Version 3)
Quarter: 2025Q3

REPORT INFORMATION
  Report Type: Report from Study
  Country: US (occurrence: US)
  Receive Date: 20250604
  Receipt Date: 20250815
  Transmission Date: 20251021
  Serious: Yes (Other)
  Sender: BAUSCH AND LOMB
  Company Number: US-BAUSCH-BL-2025-005156

PATIENT
  Age: 49 Year
  Sex: Female

DRUGS (1)
  1. SILIQ [Suspect]
     Active Substance: BRODALUMAB
     Indication: Psoriasis
     Dosage: INJECT 210 MG/1.5ML SUBCUTANEOUSLY ON WEEKS 0, 1 AND 2 AS DIRECTED
     Route: 058
     Dates: start: 202504

REACTIONS (6)
  - Syncope [Unknown]
  - Psoriasis [Unknown]
  - Insurance issue [Unknown]
  - Ill-defined disorder [Unknown]
  - Product dose omission issue [Unknown]
  - Treatment delayed [Unknown]

NARRATIVE: CASE EVENT DATE: 20250101
